FAERS Safety Report 21659037 (Version 1)
Quarter: 2022Q4

REPORT INFORMATION
  Report Type: Spontaneous
  Country: ES (occurrence: ES)
  Receive Date: 20221129
  Receipt Date: 20221129
  Transmission Date: 20230113
  Serious: Yes (Death)
  Sender: FDA-Public Use
  Company Number: ES-VERTEX PHARMACEUTICALS-2022-017719

PATIENT
  Age: 20 Year
  Sex: Female

DRUGS (4)
  1. ELEXACAFTOR\IVACAFTOR\TEZACAFTOR [Suspect]
     Active Substance: ELEXACAFTOR\IVACAFTOR\TEZACAFTOR
     Indication: Cystic fibrosis
     Dosage: UNK FREQ
     Route: 048
  2. TACROLIMUS [Concomitant]
     Active Substance: TACROLIMUS
     Indication: Immunosuppression
     Dosage: UNK
     Dates: start: 20220404
  3. MYCOPHENOLATE MOFETIL [Concomitant]
     Active Substance: MYCOPHENOLATE MOFETIL
     Indication: Immunosuppression
     Dosage: 4.9 MICROGRAM PER MILLILITER
     Route: 065
     Dates: start: 20220404
  4. MYCOPHENOLATE MOFETIL [Concomitant]
     Active Substance: MYCOPHENOLATE MOFETIL
     Dosage: 8.1 MICROGRAM PER MILLILITER
     Route: 065
     Dates: start: 20220716

REACTIONS (2)
  - Death [Fatal]
  - Abdominal pain [Unknown]

NARRATIVE: CASE EVENT DATE: 20220101
